FAERS Safety Report 5809749-7 (Version None)
Quarter: 2008Q3

REPORT INFORMATION
  Report Type: 
  Country: None (occurrence: None)
  Receive Date: 20080709
  Receipt Date: 20080624
  Transmission Date: 20090109
  Serious: Yes (Hospitalization)
  Sender: FDA-Public Use
  Company Number: 2008001509

PATIENT
  Age: 63 Year
  Sex: Male

DRUGS (7)
  1. ERLOTINIB (ERLOTINIB) (TABLET) (ERLOTINIB) [Suspect]
     Indication: NON-SMALL CELL LUNG CANCER
     Dosage: 150 MG, QD, ORAL, 100 MG, QD, ORAL
     Route: 048
     Dates: start: 20080425
  2. ERLOTINIB (ERLOTINIB) (TABLET) (ERLOTINIB) [Suspect]
     Indication: NON-SMALL CELL LUNG CANCER
     Dosage: 150 MG, QD, ORAL, 100 MG, QD, ORAL
     Route: 048
     Dates: start: 20080523
  3. NEXIUM [Concomitant]
  4. IBUPROFEN [Concomitant]
  5. NOVALGIN (METAMIZOLE SODIUM) [Concomitant]
  6. ZOMETA [Concomitant]
  7. DURAGESIC-100 [Concomitant]

REACTIONS (2)
  - CARDIAC FAILURE [None]
  - TACHYARRHYTHMIA [None]
